FAERS Safety Report 10984060 (Version 1)
Quarter: 2015Q2

REPORT INFORMATION
  Report Type: Spontaneous
  Country: US (occurrence: US)
  Receive Date: 20150403
  Receipt Date: 20150403
  Transmission Date: 20150821
  Serious: Yes (Other)
  Sender: FDA-Public Use
  Company Number: US-ASTRAZENECA-2014SE69692

PATIENT
  Age: 23219 Day
  Sex: Male
  Weight: 105.5 kg

DRUGS (27)
  1. FLUCONAZOLE. [Concomitant]
     Active Substance: FLUCONAZOLE
     Dates: start: 20140110
  2. VICTOZA [Suspect]
     Active Substance: LIRAGLUTIDE
     Dosage: UNK
     Route: 065
     Dates: start: 20120103, end: 20120215
  3. GLUCOVANCE [Concomitant]
     Active Substance: GLYBURIDE\METFORMIN HYDROCHLORIDE
  4. LISINOPRIL. [Concomitant]
     Active Substance: LISINOPRIL
  5. LEVEMIR [Concomitant]
     Active Substance: INSULIN DETEMIR
  6. HYDRODIURIL [Concomitant]
     Active Substance: HYDROCHLOROTHIAZIDE
  7. ZOLPIDEM [Concomitant]
     Active Substance: ZOLPIDEM\ZOLPIDEM TARTRATE
     Dates: start: 20140411
  8. TOPROL XL [Concomitant]
     Active Substance: METOPROLOL SUCCINATE
  9. PHENERGAN [Concomitant]
     Active Substance: PROMETHAZINE HYDROCHLORIDE
     Indication: VOMITING
  10. BYETTA [Suspect]
     Active Substance: EXENATIDE
     Route: 065
     Dates: start: 20130312
  11. JANUVIA [Suspect]
     Active Substance: SITAGLIPTIN PHOSPHATE
     Dosage: UNK
     Route: 065
     Dates: start: 20101201, end: 20110302
  12. MORPHINE [Concomitant]
     Active Substance: MORPHINE
  13. ASPIRIN. [Concomitant]
     Active Substance: ASPIRIN
  14. MORTIN [Concomitant]
  15. AMLODIPINE [Concomitant]
     Active Substance: AMLODIPINE BESYLATE
  16. ALPRAZOLAM. [Concomitant]
     Active Substance: ALPRAZOLAM
     Dates: start: 20131223
  17. METHADONE [Concomitant]
     Active Substance: METHADONE HYDROCHLORIDE
  18. AMARYL [Concomitant]
     Active Substance: GLIMEPIRIDE
  19. LOPRESSOR [Concomitant]
     Active Substance: METOPROLOL TARTRATE
  20. PHENERGAN [Concomitant]
     Active Substance: PROMETHAZINE HYDROCHLORIDE
     Indication: NAUSEA
  21. METOPROLOL TARTRATE. [Concomitant]
     Active Substance: METOPROLOL TARTRATE
     Dates: start: 20140210
  22. BYETTA [Suspect]
     Active Substance: EXENATIDE
     Route: 065
     Dates: start: 20110302, end: 20110803
  23. ALDOMET [Concomitant]
     Active Substance: METHYLDOPA
  24. IMDUR [Concomitant]
     Active Substance: ISOSORBIDE MONONITRATE
  25. MS CONTIN [Concomitant]
     Active Substance: MORPHINE SULFATE
  26. ZETIA [Concomitant]
     Active Substance: EZETIMIBE
  27. TRAMADOL [Concomitant]
     Active Substance: TRAMADOL
     Dates: start: 20130531

REACTIONS (2)
  - Pancreatic carcinoma metastatic [Unknown]
  - Hepatic cancer [Unknown]

NARRATIVE: CASE EVENT DATE: 20140116
